FAERS Safety Report 18524581 (Version 1)
Quarter: 2020Q4

REPORT INFORMATION
  Report Type: Report from Study
  Country: US (occurrence: US)
  Receive Date: 20201119
  Receipt Date: 20201119
  Transmission Date: 20210114
  Serious: Yes (Hospitalization)
  Sender: FDA-Public Use
  Company Number: US-EISAI MEDICAL RESEARCH-EC-2020-082183

PATIENT
  Age: 78 Year
  Sex: Male

DRUGS (2)
  1. LENVIMA [Suspect]
     Active Substance: LENVATINIB
     Indication: RENAL CANCER
     Route: 048
     Dates: start: 20201021, end: 20201025
  2. LENVIMA [Suspect]
     Active Substance: LENVATINIB
     Indication: BONE CANCER

REACTIONS (6)
  - Malaise [Unknown]
  - Decreased appetite [Unknown]
  - Off label use [Unknown]
  - Memory impairment [Unknown]
  - Dysphonia [Unknown]
  - Lethargy [Unknown]

NARRATIVE: CASE EVENT DATE: 2020
